FAERS Safety Report 9343405 (Version 2)
Quarter: 2013Q3

REPORT INFORMATION
  Report Type: Spontaneous
  Country: US (occurrence: US)
  Receive Date: 20130612
  Receipt Date: 20130809
  Transmission Date: 20140515
  Serious: Yes (Hospitalization)
  Sender: FDA-Public Use
  Company Number: US-BIOGENIDEC-2013BI051063

PATIENT
  Age: 72 Year
  Sex: Female

DRUGS (1)
  1. TECFIDERA [Suspect]
     Indication: MULTIPLE SCLEROSIS
     Route: 048
     Dates: start: 2013

REACTIONS (5)
  - Cellulitis [Unknown]
  - Fall [Recovered/Resolved]
  - Memory impairment [Unknown]
  - Gait disturbance [Unknown]
  - Hypersensitivity [Unknown]
